FAERS Safety Report 12611593 (Version 1)
Quarter: 2016Q3

REPORT INFORMATION
  Report Type: Spontaneous
  Country: US (occurrence: US)
  Receive Date: 20160801
  Receipt Date: 20160801
  Transmission Date: 20161109
  Serious: No
  Sender: FDA-Public Use
  Company Number: US-ELI_LILLY_AND_COMPANY-US201607005681

PATIENT
  Sex: Female

DRUGS (1)
  1. TRULICITY [Suspect]
     Active Substance: DULAGLUTIDE
     Indication: TYPE 2 DIABETES MELLITUS
     Dosage: 0.75 MG, WEEKLY (1/W)
     Route: 065
     Dates: start: 20160709

REACTIONS (10)
  - Sleep disorder [Unknown]
  - Vomiting projectile [Unknown]
  - Blood glucose increased [Unknown]
  - Gastrooesophageal reflux disease [Unknown]
  - Malaise [Unknown]
  - Urticaria [Unknown]
  - Headache [Unknown]
  - Diarrhoea [Unknown]
  - Choking [Unknown]
  - Nausea [Unknown]

NARRATIVE: CASE EVENT DATE: 20160711
